FAERS Safety Report 11981437 (Version 1)
Quarter: 2016Q1

REPORT INFORMATION
  Report Type: Report from Study
  Country: US (occurrence: US)
  Receive Date: 20160130
  Receipt Date: 20160130
  Transmission Date: 20160526
  Serious: No
  Sender: FDA-Public Use
  Company Number: PHEH2016US001820

PATIENT
  Sex: Female

DRUGS (1)
  1. EXJADE [Suspect]
     Active Substance: DEFERASIROX
     Indication: MYELODYSPLASTIC SYNDROME
     Dosage: 1250 MG, QD
     Route: 048
     Dates: start: 201408, end: 201512

REACTIONS (1)
  - Abdominal discomfort [Unknown]
